FAERS Safety Report 14799691 (Version 1)
Quarter: 2018Q2

REPORT INFORMATION
  Report Type: Spontaneous
  Country: IT (occurrence: IT)
  Receive Date: 20180424
  Receipt Date: 20180424
  Transmission Date: 20180711
  Serious: Yes (Other)
  Sender: FDA-Public Use
  Company Number: IT-ROCHE-2110084

PATIENT
  Age: 70 Year
  Sex: Male

DRUGS (3)
  1. DASABUVIR [Suspect]
     Active Substance: DASABUVIR
     Indication: HEPATITIS C
     Dosage: ON 30/OCT/2015, SHE RECEIVED MOST RECENT DOSE OF DASABUVIR.
     Route: 048
     Dates: start: 20150715
  2. RIBAVIRIN. [Suspect]
     Active Substance: RIBAVIRIN
     Indication: PRODUCT USED FOR UNKNOWN INDICATION
     Dosage: ON 30/OCT/2015, SHE RECEIVED MOST RECENT DOSE OF RIBAVIRIN
     Route: 065
     Dates: start: 20150715
  3. VIEKIRAX [Suspect]
     Active Substance: OMBITASVIR\PARITAPREVIR\RITONAVIR
     Indication: HEPATITIS C
     Dosage: ON 30/OCT/2015, SHE RECEIVED MOST RECENT DOSE OF OMBITASVIR/PARITAPREVIR/RITONAVIR.
     Route: 048
     Dates: start: 20150715

REACTIONS (1)
  - Hepatocellular carcinoma [Not Recovered/Not Resolved]

NARRATIVE: CASE EVENT DATE: 20151027
